FAERS Safety Report 10450213 (Version 1)
Quarter: 2014Q3

REPORT INFORMATION
  Report Type: Report from Study
  Country: US (occurrence: US)
  Receive Date: 20140912
  Receipt Date: 20140912
  Transmission Date: 20150326
  Serious: Yes (Hospitalization, Other)
  Sender: FDA-Public Use
  Company Number: US-ABBVIE-14K-163-1281488-00

PATIENT
  Age: 38 Year
  Sex: Female

DRUGS (12)
  1. UNKNOWN MEDICATION [Suspect]
     Active Substance: UNSPECIFIED INGREDIENT
     Indication: GASTRIC DISORDER
     Dates: end: 201301
  2. WARFARIN [Suspect]
     Active Substance: WARFARIN
     Indication: THROMBOSIS
     Dates: start: 20140510
  3. UNKNOWN MEDICATION [Suspect]
     Active Substance: UNSPECIFIED INGREDIENT
     Dates: start: 201404
  4. MELOXICAM. [Suspect]
     Active Substance: MELOXICAM
     Dates: start: 201404
  5. RANITIDINE [Suspect]
     Active Substance: RANITIDINE\RANITIDINE HYDROCHLORIDE
     Dates: start: 201404
  6. POTASSIUM [Suspect]
     Active Substance: POTASSIUM
     Indication: BLOOD POTASSIUM DECREASED
     Dates: end: 201301
  7. WARFARIN [Suspect]
     Active Substance: WARFARIN
     Dates: start: 20140903, end: 20140903
  8. HUMIRA [Suspect]
     Active Substance: ADALIMUMAB
     Indication: RHEUMATOID ARTHRITIS
     Dates: start: 201201, end: 201301
  9. MELOXICAM. [Suspect]
     Active Substance: MELOXICAM
     Indication: FIBROMYALGIA
     Dates: end: 201301
  10. POTASSIUM [Suspect]
     Active Substance: POTASSIUM
     Dates: start: 201404
  11. HUMIRA [Suspect]
     Active Substance: ADALIMUMAB
     Dates: start: 201404, end: 201408
  12. RANITIDINE [Suspect]
     Active Substance: RANITIDINE\RANITIDINE HYDROCHLORIDE
     Indication: GASTROOESOPHAGEAL REFLUX DISEASE
     Dates: end: 201301

REACTIONS (10)
  - Peripheral swelling [Unknown]
  - Peripheral swelling [Unknown]
  - Drug interaction [Unknown]
  - Mobility decreased [Unknown]
  - International normalised ratio abnormal [Unknown]
  - Thrombosis [Unknown]
  - Hypersomnia [Unknown]
  - Skin discolouration [Unknown]
  - Injury [Not Recovered/Not Resolved]
  - Road traffic accident [Not Recovered/Not Resolved]

NARRATIVE: CASE EVENT DATE: 201301
